FAERS Safety Report 13105069 (Version 1)
Quarter: 2017Q1

REPORT INFORMATION
  Report Type: Spontaneous
  Country: BR (occurrence: BR)
  Receive Date: 20170111
  Receipt Date: 20170111
  Transmission Date: 20170428
  Serious: Yes (Hospitalization)
  Sender: FDA-Public Use
  Company Number: BR-PFIZER INC-2017005504

PATIENT
  Age: 84 Year
  Sex: Male
  Weight: 69 kg

DRUGS (4)
  1. AAS [Concomitant]
     Active Substance: ASPIRIN
     Dosage: UNK
     Route: 048
     Dates: start: 201610
  2. CITALOR [Suspect]
     Active Substance: ATORVASTATIN
     Indication: BLOOD CHOLESTEROL
     Dosage: 40 MG, 1X AT LUNCH
     Route: 048
     Dates: start: 201610
  3. CLOPIDOGREL [Concomitant]
     Active Substance: CLOPIDOGREL BISULFATE
     Indication: ANTICOAGULANT THERAPY
     Dosage: UNK, 1X/DAY
     Route: 048
     Dates: start: 201610
  4. CARVEDILOL. [Concomitant]
     Active Substance: CARVEDILOL
     Indication: BLOOD PRESSURE ABNORMAL
     Dosage: UNK, 2X/DAY
     Route: 048
     Dates: start: 201610

REACTIONS (3)
  - Cardiac failure [Unknown]
  - Cerebral thrombosis [Unknown]
  - Hypoaesthesia [Unknown]
